FAERS Safety Report 10619961 (Version 1)
Quarter: 2014Q4

REPORT INFORMATION
  Report Type: Spontaneous
  Country: US (occurrence: US)
  Receive Date: 20141202
  Receipt Date: 20141202
  Transmission Date: 20150529
  Serious: Yes (Hospitalization, Other)
  Sender: FDA-Public Use
  Company Number: US-BAYER-2014-173538

PATIENT
  Sex: Female

DRUGS (2)
  1. BILTRICIDE [Suspect]
     Active Substance: PRAZIQUANTEL
     Indication: FASCIOLIASIS
     Dosage: 8 PILLS A DAY
  2. BILTRICIDE [Suspect]
     Active Substance: PRAZIQUANTEL
     Indication: FASCIOLIASIS
     Dosage: UNK
     Route: 048

REACTIONS (11)
  - Escherichia infection [None]
  - Lyme disease [None]
  - Bedridden [None]
  - Drug ineffective [None]
  - Immune system disorder [None]
  - Plague [None]
  - Hyperhidrosis [None]
  - Cholecystectomy [None]
  - Pyrexia [None]
  - Feeling abnormal [None]
  - Arthropod bite [None]
